FAERS Safety Report 8586264-1 (Version None)
Quarter: 2012Q3

REPORT INFORMATION
  Report Type: 
  Country: None (occurrence: None)
  Receive Date: 20120810
  Receipt Date: 20120803
  Transmission Date: 20120928
  Serious: Yes (Hospitalization)
  Sender: FDA-Public Use
  Company Number: DE-UCBSA-058575

PATIENT
  Age: 61 Year
  Sex: Female

DRUGS (8)
  1. ARCOXIA [Concomitant]
     Indication: RHEUMATOID ARTHRITIS
     Dates: start: 20110202
  2. OMEPRAZOLE [Concomitant]
     Dates: start: 20101101
  3. CIMZIA [Suspect]
     Indication: RHEUMATOID ARTHRITIS
     Dates: start: 20120101, end: 20120516
  4. PREDNISONE [Concomitant]
     Indication: RHEUMATOID ARTHRITIS
     Dates: start: 20020301
  5. METFORMIN HYDROCHLORIDE [Concomitant]
  6. METHOTREXATE [Concomitant]
  7. LEVOTHYROXINE SODIUM [Concomitant]
  8. METHOTREXATE [Concomitant]
     Route: 048
     Dates: start: 20080401, end: 20091101

REACTIONS (1)
  - THYROID CANCER [None]
